FAERS Safety Report 12781352 (Version 2)
Quarter: 2016Q4

REPORT INFORMATION
  Report Type: Spontaneous
  Country: US (occurrence: US)
  Receive Date: 20160926
  Receipt Date: 20161012
  Transmission Date: 20170207
  Serious: Yes (Other)
  Sender: FDA-Public Use
  Company Number: US-TEVA-695658USA

PATIENT
  Age: 48 Year
  Sex: Female
  Weight: 52.21 kg

DRUGS (1)
  1. HYDROCODONE BITARTRATE AND ACETAMINOPHEN [Suspect]
     Active Substance: ACETAMINOPHEN\HYDROCODONE BITARTRATE
     Indication: PAIN
     Dosage: 5/325MG
     Route: 065

REACTIONS (2)
  - False negative investigation result [Unknown]
  - Gastric bypass [Unknown]

NARRATIVE: CASE EVENT DATE: 20160705
